FAERS Safety Report 4593151-2 (Version None)
Quarter: 2005Q1

REPORT INFORMATION
  Report Type: 
  Country: None (occurrence: None)
  Receive Date: 20050224
  Receipt Date: 20040206
  Transmission Date: 20050727
  Serious: No
  Sender: FDA-Public Use
  Company Number: US-BRISTOL-MYERS SQUIBB COMPANY-12501581

PATIENT
  Age: 40 Year
  Sex: Female
  Weight: 50 kg

DRUGS (2)
  1. EXCEDRIN (MIGRAINE) [Suspect]
     Indication: HEADACHE
     Dosage: DOSE VALUE:  ONE OR TWO DOSAGE FORM
     Route: 048
     Dates: start: 20040126, end: 20040205
  2. ORTHO-NOVUM [Concomitant]

REACTIONS (1)
  - URTICARIA [None]
